FAERS Safety Report 6286960-5 (Version None)
Quarter: 2009Q3

REPORT INFORMATION
  Report Type: 
  Country: None (occurrence: None)
  Receive Date: 20090728
  Receipt Date: 20090716
  Transmission Date: 20100115
  Serious: Yes (Hospitalization)
  Sender: FDA-Public Use
  Company Number: US-WYE-H10191309

PATIENT
  Sex: Female
  Weight: 57.39 kg

DRUGS (3)
  1. PRISTIQ [Suspect]
     Indication: MAJOR DEPRESSION
     Route: 048
     Dates: start: 20090710, end: 20090711
  2. PRISTIQ [Suspect]
     Indication: ANXIETY
  3. KLONOPIN [Concomitant]
     Indication: ANXIETY
     Dosage: UNKNOWN DOSE AS NEEDED
     Route: 065

REACTIONS (6)
  - ABNORMAL BEHAVIOUR [None]
  - AMNESIA [None]
  - CONFUSIONAL STATE [None]
  - DISORIENTATION [None]
  - LETHARGY [None]
  - PAIN IN EXTREMITY [None]
